FAERS Safety Report 5775379-9 (Version None)
Quarter: 2008Q2

REPORT INFORMATION
  Report Type: 
  Country: None (occurrence: None)
  Receive Date: 20080617
  Receipt Date: 20080609
  Transmission Date: 20081010
  Serious: Yes (Hospitalization, Disabling, Other)
  Sender: FDA-Public Use
  Company Number: US-MERCK-0806USA01709

PATIENT
  Age: 76 Year
  Sex: Female

DRUGS (7)
  1. PRINIVIL [Suspect]
     Indication: HYPERTENSION
     Route: 048
  2. TRUVADA [Suspect]
     Indication: HIV INFECTION
     Route: 048
     Dates: start: 20050812, end: 20080515
  3. REYATAZ [Interacting]
     Indication: HIV INFECTION
     Route: 048
  4. RITONAVIR [Interacting]
     Indication: HIV INFECTION
     Route: 048
  5. ASPIRIN [Concomitant]
     Indication: CORONARY ARTERY DISEASE
     Route: 048
  6. FENOFIBRATE [Concomitant]
     Indication: BLOOD CHOLESTEROL INCREASED
     Route: 048
  7. CRESTOR [Concomitant]
     Route: 048

REACTIONS (9)
  - BLOOD CREATININE INCREASED [None]
  - DEHYDRATION [None]
  - DIARRHOEA [None]
  - DIVERTICULAR PERFORATION [None]
  - DRUG INTERACTION [None]
  - NAUSEA [None]
  - RENAL TUBULAR NECROSIS [None]
  - SEPSIS [None]
  - VOMITING [None]
